FAERS Safety Report 12808761 (Version 1)
Quarter: 2016Q4

REPORT INFORMATION
  Report Type: Spontaneous
  Country: AU (occurrence: AU)
  Receive Date: 20161004
  Receipt Date: 20161004
  Transmission Date: 20170207
  Serious: Yes (Other)
  Sender: FDA-Public Use
  Company Number: AU-PFIZER INC-1178180

PATIENT
  Age: 9 Year
  Sex: Male

DRUGS (5)
  1. CALCITRIOL. [Suspect]
     Active Substance: CALCITRIOL
     Indication: OSTEOPOROSIS
     Dosage: 0.25 MCG TWICE DAIY
  2. CALCIUM [Concomitant]
     Active Substance: CALCIUM
     Indication: MINERAL SUPPLEMENTATION
     Dosage: NOT REPORTED
  3. CALCITRIOL. [Suspect]
     Active Substance: CALCITRIOL
     Indication: SPINAL COMPRESSION FRACTURE
  4. PAMIDRONATE DISODIUM. [Suspect]
     Active Substance: PAMIDRONATE DISODIUM
     Indication: SPINAL COMPRESSION FRACTURE
  5. PAMIDRONATE DISODIUM. [Suspect]
     Active Substance: PAMIDRONATE DISODIUM
     Indication: OSTEOPOROSIS
     Dosage: 30 MG/M^2 MONTHLY
     Route: 041

REACTIONS (1)
  - Nephrocalcinosis [Recovered/Resolved]
